FAERS Safety Report 4587494-6 (Version None)
Quarter: 2005Q1

REPORT INFORMATION
  Report Type: 
  Country: None (occurrence: None)
  Receive Date: 20050215
  Receipt Date: 20050202
  Transmission Date: 20050727
  Serious: Yes (Hospitalization)
  Sender: FDA-Public Use
  Company Number: 2005024115

PATIENT
  Age: 42 Year
  Sex: Male

DRUGS (6)
  1. VIRACEPT [Suspect]
     Indication: ACQUIRED IMMUNODEFICIENCY SYNDROME
     Dates: end: 20040401
  2. PERINDOPRIL (PERINDOPRIL) [Suspect]
     Indication: ESSENTIAL HYPERTENSION
     Dosage: 4 MG
     Dates: start: 20030615, end: 20040401
  3. BACTRIM [Suspect]
     Indication: ILL-DEFINED DISORDER
     Dates: end: 20040401
  4. LAMIVUDINE AND ZIDOVUDINE [Suspect]
     Indication: ILL-DEFINED DISORDER
     Dates: end: 20040401
  5. ERGENYL CHRONO (VALPROATE SODIUM, VALPROIC ACID) [Suspect]
     Indication: ILL-DEFINED DISORDER
     Dates: end: 20040401
  6. BACLOFEN [Suspect]
     Indication: ILL-DEFINED DISORDER
     Dates: end: 20040401

REACTIONS (5)
  - ALANINE AMINOTRANSFERASE INCREASED [None]
  - ASPARTATE AMINOTRANSFERASE INCREASED [None]
  - BLOOD LACTATE DEHYDROGENASE INCREASED [None]
  - BONE MARROW DEPRESSION [None]
  - PROTHROMBIN LEVEL DECREASED [None]
